FAERS Safety Report 5829948-8 (Version None)
Quarter: 2008Q3

REPORT INFORMATION
  Report Type: 
  Country: None (occurrence: None)
  Receive Date: 20080730
  Receipt Date: 20080730
  Transmission Date: 20090109
  Serious: Yes (Death)
  Sender: FDA-Public Use
  Company Number: None

PATIENT
  Age: 56 Year
  Sex: Female
  Weight: 71.2 kg

DRUGS (5)
  1. KALETRA [Suspect]
     Dosage: 400/100 MILLIGRAMS TWICE A DAY ORAL
     Route: 048
     Dates: start: 20080206, end: 20080701
  2. ENALAPRIL MALEATE [Concomitant]
  3. GEMFIBROZIL [Concomitant]
  4. ASPIRIN [Concomitant]
  5. ISOSORBIDE DINITRATE [Concomitant]

REACTIONS (11)
  - ACUTE MYOCARDIAL INFARCTION [None]
  - ADRENAL INSUFFICIENCY [None]
  - AORTIC STENOSIS [None]
  - CUSHING'S SYNDROME [None]
  - HYPERTENSIVE HEART DISEASE [None]
  - LEFT VENTRICULAR HYPERTROPHY [None]
  - LOSS OF CONSCIOUSNESS [None]
  - MYALGIA [None]
  - PUPIL FIXED [None]
  - PUPILLARY REFLEX IMPAIRED [None]
  - WEIGHT INCREASED [None]
